FAERS Safety Report 24618582 (Version 1)
Quarter: 2024Q4

REPORT INFORMATION
  Report Type: Spontaneous
  Country: US (occurrence: None)
  Receive Date: 20241114
  Receipt Date: 20241114
  Transmission Date: 20250115
  Serious: Yes (Hospitalization)
  Sender: Public
  Company Number: None

PATIENT
  Weight: 120 kg

DRUGS (4)
  1. CISPLATIN [Suspect]
     Active Substance: CISPLATIN
  2. IFOSFAMIDE [Suspect]
     Active Substance: IFOSFAMIDE
  3. TAXOL [Suspect]
     Active Substance: PACLITAXEL
  4. NEULASTA [Suspect]
     Active Substance: PEGFILGRASTIM

REACTIONS (3)
  - General physical health deterioration [None]
  - Pancytopenia [None]
  - Oral candidiasis [None]

NARRATIVE: CASE EVENT DATE: 20220509
